FAERS Safety Report 6181666-5 (Version None)
Quarter: 2009Q2

REPORT INFORMATION
  Report Type: 
  Country: None (occurrence: None)
  Receive Date: 20090506
  Receipt Date: 20090428
  Transmission Date: 20091009
  Serious: Yes (Other)
  Sender: FDA-Public Use
  Company Number: B0572782A

PATIENT
  Age: 15 Year
  Sex: Female

DRUGS (2)
  1. PAROXETINE HCL [Suspect]
     Indication: MOOD SWINGS
     Dosage: 20MG PER DAY
     Dates: start: 20000101, end: 20000101
  2. PRAXITEN [Concomitant]
     Indication: MOOD SWINGS
     Dosage: 1TAB PER DAY
     Dates: start: 20000101, end: 20000101

REACTIONS (6)
  - AGITATION [None]
  - DELIRIUM [None]
  - HALLUCINATION, VISUAL [None]
  - HYPOMANIA [None]
  - INSOMNIA [None]
  - PSYCHOTIC DISORDER [None]
